FAERS Safety Report 10544306 (Version 1)
Quarter: 2014Q4

REPORT INFORMATION
  Report Type: Spontaneous
  Country: US (occurrence: None)
  Receive Date: 20141010
  Receipt Date: 20141010
  Transmission Date: 20150529
  Serious: Yes (Hospitalization)
  Sender: FDA-Public Use
  Company Number: 163-POMAL-14065044

PATIENT
  Age: 53 Year
  Sex: Male

DRUGS (9)
  1. BACTRIM DS (BACTRIM) [Concomitant]
  2. XARELTO [Concomitant]
     Active Substance: RIVAROXABAN
  3. POMALYST [Suspect]
     Active Substance: POMALIDOMIDE
     Indication: PLASMA CELL MYELOMA
     Dosage: 2 MG, 28 IN 28 D, PO
     Route: 048
     Dates: start: 20131219
  4. ATIVAN [Concomitant]
     Active Substance: LORAZEPAM
  5. DEXAMETHASONE (DEXAMETHASONE) [Concomitant]
     Active Substance: DEXAMETHASONE
  6. ZOFRAN (ONDANSETRON HYDROCHLORIDE) [Concomitant]
  7. CLINDAMYCIN HCL (CLINDAMYCIN HYDROCHLORIDE) [Concomitant]
  8. AMOXICILLIN (AMOXICLLIN) [Concomitant]
  9. VALIUM [Concomitant]
     Active Substance: DIAZEPAM

REACTIONS (1)
  - Confusional state [None]

NARRATIVE: CASE EVENT DATE: 20140625
